FAERS Safety Report 9206341 (Version 2)
Quarter: 2013Q2

REPORT INFORMATION
  Report Type: Report from Study
  Country: NL (occurrence: NL)
  Receive Date: 20130403
  Receipt Date: 20130501
  Transmission Date: 20140414
  Serious: Yes (Hospitalization, Other)
  Sender: FDA-Public Use
  Company Number: PHHY2013NL031145

PATIENT
  Sex: Male

DRUGS (2)
  1. ZOMETA [Suspect]
     Indication: PROSTATE CANCER METASTATIC
     Dosage: 4 MG PER100ML, ONCE PER 28 DAYS
     Dates: start: 20121109
  2. ZOMETA [Suspect]
     Indication: PROSTATE CANCER METASTATIC

REACTIONS (2)
  - Pulmonary embolism [Not Recovered/Not Resolved]
  - Fungal infection [Unknown]
